FAERS Safety Report 8076234-4 (Version None)
Quarter: 2012Q1

REPORT INFORMATION
  Report Type: 
  Country: None (occurrence: None)
  Receive Date: 20120127
  Receipt Date: 20120117
  Transmission Date: 20120608
  Serious: Yes (Death, Hospitalization)
  Sender: FDA-Public Use
  Company Number: JP-ROCHE-1001512

PATIENT
  Sex: Male

DRUGS (7)
  1. EFAVIRENZ [Concomitant]
     Indication: HIV INFECTION
     Route: 048
  2. PEGINTERFERON ALFA-2A [Suspect]
     Indication: HEPATITIS C
     Route: 058
     Dates: start: 20110309, end: 20110608
  3. COPEGUS [Suspect]
     Indication: HEPATITIS C
     Route: 048
     Dates: start: 20110309, end: 20110618
  4. OLOPATADINE HCL [Concomitant]
     Indication: RASH
     Route: 048
  5. TRUVADA [Concomitant]
     Indication: HIV INFECTION
     Route: 048
  6. ZOLPIDEM [Concomitant]
     Indication: INSOMNIA
     Route: 048
     Dates: start: 20101222, end: 20110615
  7. NERISONA [Concomitant]
     Indication: RASH
     Dosage: PROPERLY
     Route: 003

REACTIONS (4)
  - ALANINE AMINOTRANSFERASE INCREASED [None]
  - DEATH [None]
  - INSOMNIA [None]
  - TYPE 1 DIABETES MELLITUS [None]
